FAERS Safety Report 20051803 (Version 1)
Quarter: 2021Q4

REPORT INFORMATION
  Report Type: Spontaneous
  Country: ES (occurrence: ES)
  Receive Date: 20211110
  Receipt Date: 20211110
  Transmission Date: 20220303
  Serious: Yes (Other)
  Sender: FDA-Public Use
  Company Number: ES-SA-SAC20211108000437

PATIENT
  Sex: Female

DRUGS (1)
  1. APIDRA [Suspect]
     Active Substance: INSULIN GLULISINE
     Indication: Type 1 diabetes mellitus
     Dosage: UNK UNK, TID (AT EACH MEAL, ACCORDING TO PRE-PRANDIAL BLOOD GLUCOSE (ADJUSTMENT) AND INTAKE RATIONS)
     Route: 058

REACTIONS (7)
  - Cataract [Recovering/Resolving]
  - Visual impairment [Recovering/Resolving]
  - Injection site mass [Recovered/Resolved]
  - Injection site haematoma [Recovered/Resolved]
  - Injection site haemorrhage [Recovered/Resolved]
  - Injection site pain [Unknown]
  - Injection site bruising [Unknown]

NARRATIVE: CASE EVENT DATE: 20211001
